FAERS Safety Report 8484880-9 (Version None)
Quarter: 2012Q3

REPORT INFORMATION
  Report Type: 
  Country: None (occurrence: None)
  Receive Date: 20120703
  Receipt Date: 20120626
  Transmission Date: 20120928
  Serious: Yes (Hospitalization, Other)
  Sender: FDA-Public Use
  Company Number: US-BAYER-2012-055368

PATIENT
  Age: 74 Year
  Sex: Female
  Weight: 73.94 kg

DRUGS (22)
  1. LASIX [Concomitant]
     Indication: DIURETIC THERAPY
     Dosage: 40 MG, TID
     Route: 048
     Dates: start: 20120101
  2. DIGOXIN [Concomitant]
     Indication: CARDIAC DISORDER
     Dosage: 125 ?G, QD
     Route: 048
     Dates: start: 20120101
  3. POTASSIUM CHLORIDE [Concomitant]
     Indication: BLOOD POTASSIUM DECREASED
     Route: 048
     Dates: start: 20090101
  4. XARELTO [Interacting]
     Indication: CEREBROVASCULAR ACCIDENT PROPHYLAXIS
     Dosage: DAILY DOSE 10 MG
  5. ASPIRIN [Interacting]
     Indication: THROMBOSIS PROPHYLAXIS
     Dosage: 81 MG, QD
     Dates: start: 20050101
  6. ALL OTHER THERAPEUTIC PRODUCTS [Concomitant]
     Route: 048
     Dates: start: 20120101
  7. DILANTIN [Concomitant]
     Indication: CONVULSION
     Route: 048
     Dates: start: 20050101
  8. METOLAZONE [Concomitant]
     Indication: DIURETIC THERAPY
     Route: 048
     Dates: start: 20120301
  9. FLUTICASONE PROPIONATE [Concomitant]
     Dosage: DAILY DOSE 50 ?G
  10. METOPROLOL SUCCINATE [Concomitant]
     Indication: CARDIAC DISORDER
     Route: 048
     Dates: start: 20050101
  11. PRAVASTAN [Concomitant]
     Indication: BLOOD CHOLESTEROL ABNORMAL
     Route: 048
     Dates: start: 20080101
  12. XANAX [Concomitant]
     Indication: ANXIETY
     Dosage: .125 MG, QD
     Route: 048
     Dates: start: 20120101
  13. IMDUR [Concomitant]
     Indication: CARDIAC DISORDER
     Route: 048
  14. ROFLUMILAST [Concomitant]
     Dosage: 500 MG, QD
  15. TRAMADOL HCL [Suspect]
     Indication: HEADACHE
     Dosage: 50 MG, UNK
     Route: 048
     Dates: start: 20120201
  16. ALLOPURINOL [Concomitant]
     Indication: GOUT
     Dosage: 100 MG, BID
     Route: 048
     Dates: start: 20120101
  17. CALCIUM [Concomitant]
     Dosage: 600 MG, QD
     Route: 048
     Dates: start: 20080101
  18. DOCUSATE SODIUM [Concomitant]
     Indication: ABNORMAL FAECES
  19. CALCIUM CARBONATE [Concomitant]
     Dosage: 600 MG, QD
     Route: 048
     Dates: start: 20080101
  20. SPIRIVA [Concomitant]
     Indication: CHRONIC OBSTRUCTIVE PULMONARY DISEASE
     Route: 048
     Dates: start: 20120101
  21. XARELTO [Interacting]
     Indication: ATRIAL FIBRILLATION
     Dosage: 20 MG, QD
     Route: 048
     Dates: start: 20120514
  22. SYMBICORT [Concomitant]
     Indication: CHRONIC OBSTRUCTIVE PULMONARY DISEASE
     Route: 048
     Dates: start: 20110101

REACTIONS (6)
  - BLOOD POTASSIUM DECREASED [None]
  - ADVERSE EVENT [None]
  - EPISTAXIS [None]
  - CONSTIPATION [None]
  - VISION BLURRED [None]
  - HEADACHE [None]
